FAERS Safety Report 20702180 (Version 3)
Quarter: 2022Q3

REPORT INFORMATION
  Report Type: Spontaneous
  Country: JP (occurrence: JP)
  Receive Date: 20220412
  Receipt Date: 20220902
  Transmission Date: 20221027
  Serious: Yes (Death, Other)
  Sender: FDA-Public Use
  Company Number: JP-MSD-M2022-14142

PATIENT
  Age: 59 Year
  Sex: Female

DRUGS (3)
  1. KEYTRUDA [Suspect]
     Active Substance: PEMBROLIZUMAB
     Indication: Triple negative breast cancer
     Dosage: 200 MILLIGRAM, Q3W
     Route: 041
     Dates: start: 20211130, end: 2022
  2. CARBOPLATIN [Suspect]
     Active Substance: CARBOPLATIN
     Indication: Triple negative breast cancer
     Dosage: UNK
     Route: 065
     Dates: start: 20211130, end: 2022
  3. GEMCITABINE HYDROCHLORIDE [Concomitant]
     Active Substance: GEMCITABINE HYDROCHLORIDE
     Indication: Triple negative breast cancer
     Dosage: UNK
     Route: 065
     Dates: start: 20211130, end: 2022

REACTIONS (7)
  - Basedow^s disease [Unknown]
  - Immune-mediated hyperthyroidism [Recovered/Resolved]
  - Hypothyroidism [Unknown]
  - Myelosuppression [Recovering/Resolving]
  - Malignant neoplasm progression [Fatal]
  - Diarrhoea [Unknown]
  - Drug ineffective [Unknown]

NARRATIVE: CASE EVENT DATE: 20211224
